FAERS Safety Report 18940323 (Version 1)
Quarter: 2021Q1

REPORT INFORMATION
  Report Type: Spontaneous
  Country: US (occurrence: US)
  Receive Date: 20210225
  Receipt Date: 20210225
  Transmission Date: 20210420
  Serious: No
  Sender: FDA-Public Use
  Company Number: US-009507513-2102USA008437

PATIENT
  Age: 16 Year
  Sex: Male

DRUGS (2)
  1. TEMODAR [Suspect]
     Active Substance: TEMOZOLOMIDE
     Indication: GLIOBLASTOMA
     Dosage: UNK, CYCLICAL
     Route: 048
  2. TEMODAR [Suspect]
     Active Substance: TEMOZOLOMIDE
     Dosage: UNK, CYCLICAL; ADJUVANT
     Route: 048

REACTIONS (1)
  - Off label use [Unknown]
